FAERS Safety Report 15881511 (Version 1)
Quarter: 2019Q1

REPORT INFORMATION
  Report Type: Spontaneous
  Country: US (occurrence: US)
  Receive Date: 20190128
  Receipt Date: 20190128
  Transmission Date: 20190417
  Serious: No
  Sender: FDA-Public Use
  Company Number: US-SA-2019SA018327

PATIENT
  Age: 66 Year
  Sex: Female

DRUGS (13)
  1. VALSARTAN. [Concomitant]
     Active Substance: VALSARTAN
  2. METHOTREXATE. [Concomitant]
     Active Substance: METHOTREXATE
  3. HYDROCHLOROTHIAZIDE. [Concomitant]
     Active Substance: HYDROCHLOROTHIAZIDE
  4. FAMOTIDINE. [Concomitant]
     Active Substance: FAMOTIDINE
  5. ESCITALOPRAM [Concomitant]
     Active Substance: ESCITALOPRAM OXALATE
  6. ATORVASTIN [Concomitant]
     Active Substance: ATORVASTATIN
  7. DUPIXENT [Suspect]
     Active Substance: DUPILUMAB
     Indication: DERMATITIS ATOPIC
     Dosage: 300 MG, QOW
     Route: 058
     Dates: start: 20181020
  8. DESOXIMETASONE. [Concomitant]
     Active Substance: DESOXIMETASONE
  9. ESTRADIOL. [Concomitant]
     Active Substance: ESTRADIOL
  10. CLINDAMYCIN. [Concomitant]
     Active Substance: CLINDAMYCIN
  11. NOVOLOG [Concomitant]
     Active Substance: INSULIN ASPART
  12. AMLODIPINE [Concomitant]
     Active Substance: AMLODIPINE BESYLATE
  13. LANTUS [Concomitant]
     Active Substance: INSULIN GLARGINE

REACTIONS (2)
  - Injection site inflammation [Unknown]
  - Injection site erythema [Unknown]

NARRATIVE: CASE EVENT DATE: 20190116
